FAERS Safety Report 14388565 (Version 1)
Quarter: 2018Q1

REPORT INFORMATION
  Report Type: Spontaneous
  Country: US (occurrence: US)
  Receive Date: 20180115
  Receipt Date: 20180115
  Transmission Date: 20180509
  Serious: Yes (Other)
  Sender: FDA-Public Use
  Company Number: US-AMNEAL PHARMACEUTICALS-2017AMN00987

PATIENT
  Age: 24 Year
  Sex: Male

DRUGS (16)
  1. OXYMORPHONE HYDROCHLORIDE (IMPAX) [Suspect]
     Active Substance: OXYMORPHONE HYDROCHLORIDE
     Indication: SPINAL PAIN
  2. HYDROMORPHONE HYDROCHLORIDE (WESTWARD) [Suspect]
     Active Substance: HYDROMORPHONE HYDROCHLORIDE
     Indication: PAIN
     Dosage: UNK
     Route: 065
  3. HYDROCODONE-ACETAMINOPHEN (ACTAVIS) [Suspect]
     Active Substance: ACETAMINOPHEN\HYDROCODONE
     Indication: PAIN
     Dosage: UNK
     Route: 065
  4. HYDROCODONE-ACETAMINOPHEN (ACTAVIS) [Suspect]
     Active Substance: ACETAMINOPHEN\HYDROCODONE
     Indication: SPINAL PAIN
  5. OXYCODONE-ACETAMINOPHEN (PAR) [Suspect]
     Active Substance: ACETAMINOPHEN\OXYCODONE HYDROCHLORIDE
     Indication: SPINAL PAIN
  6. OXYCODONE-ACETAMINOPHEN (PAR) [Suspect]
     Active Substance: ACETAMINOPHEN\OXYCODONE HYDROCHLORIDE
     Indication: PAIN
     Dosage: UNK
     Route: 065
  7. OXYCODONE HYDROCHLORIDE (KVK) [Suspect]
     Active Substance: OXYCODONE HYDROCHLORIDE
     Indication: SPINAL PAIN
  8. OXYMORPHONE HYDROCHLORIDE (IMPAX) [Suspect]
     Active Substance: OXYMORPHONE HYDROCHLORIDE
     Indication: PAIN
     Dosage: UNK
     Route: 065
  9. HYDROMORPHONE HYDROCHLORIDE (WESTWARD) [Suspect]
     Active Substance: HYDROMORPHONE HYDROCHLORIDE
     Indication: SPINAL PAIN
  10. OXYCODONE AND ACETAMINOPHEN [Suspect]
     Active Substance: ACETAMINOPHEN\OXYCODONE HYDROCHLORIDE
     Indication: SPINAL PAIN
  11. OXYMORPHONE HYDROCHLORIDE (KVK) [Suspect]
     Active Substance: OXYMORPHONE HYDROCHLORIDE
     Indication: SPINAL PAIN
  12. OXYCODONE AND ACETAMINOPHEN [Suspect]
     Active Substance: ACETAMINOPHEN\OXYCODONE HYDROCHLORIDE
     Indication: PAIN
     Dosage: UNK
     Route: 065
  13. OXYMORPHONE HYDROCHLORIDE (KVK) [Suspect]
     Active Substance: OXYMORPHONE HYDROCHLORIDE
     Indication: PAIN
     Dosage: UNK
     Route: 065
  14. HYDROCODONE-ACETAMINOPHEN (MALLINCKRODT) [Suspect]
     Active Substance: ACETAMINOPHEN\HYDROCODONE
     Indication: PAIN
     Dosage: UNK
     Route: 065
  15. OXYCODONE HYDROCHLORIDE (KVK) [Suspect]
     Active Substance: OXYCODONE HYDROCHLORIDE
     Indication: PAIN
     Dosage: UNK
     Route: 065
  16. HYDROCODONE-ACETAMINOPHEN (MALLINCKRODT) [Suspect]
     Active Substance: ACETAMINOPHEN\HYDROCODONE
     Indication: SPINAL PAIN

REACTIONS (3)
  - Emotional distress [Unknown]
  - Stress [Unknown]
  - Drug dependence [Unknown]

NARRATIVE: CASE EVENT DATE: 2014
